FAERS Safety Report 6812791-0 (Version None)
Quarter: 2010Q3

REPORT INFORMATION
  Report Type: 
  Country: None (occurrence: None)
  Receive Date: 20100701
  Receipt Date: 20100623
  Transmission Date: 20110219
  Serious: Yes (Other)
  Sender: FDA-Public Use
  Company Number: B0662421A

PATIENT
  Sex: Female

DRUGS (1)
  1. ZANTAC [Suspect]
     Dosage: 2TAB PER DAY
     Route: 065
     Dates: start: 20090901

REACTIONS (3)
  - ADVERSE DRUG REACTION [None]
  - GASTRIC PH INCREASED [None]
  - NEUROTOXICITY [None]
